FAERS Safety Report 14519799 (Version 1)
Quarter: 2018Q1

REPORT INFORMATION
  Report Type: Spontaneous
  Country: FR (occurrence: FR)
  Receive Date: 20180212
  Receipt Date: 20180212
  Transmission Date: 20180509
  Serious: Yes (Other)
  Sender: FDA-Public Use
  Company Number: PHHY2017FR200746

PATIENT
  Age: 85 Year
  Sex: Female

DRUGS (3)
  1. ACYCLOVIR. [Suspect]
     Active Substance: ACYCLOVIR
     Indication: HERPES SIMPLEX
     Dosage: 15 MG, TID
     Route: 042
  2. VALACICLOVIR [Suspect]
     Active Substance: VALACYCLOVIR HYDROCHLORIDE
     Indication: HERPES SIMPLEX
     Dosage: 1 G, TID
     Route: 065
  3. CHLORAMINOPHENE [Suspect]
     Active Substance: CHLORAMBUCIL
     Indication: ANAEMIA
     Route: 065

REACTIONS (3)
  - Spinal cord disorder [Unknown]
  - Viral mutation identified [Unknown]
  - Drug ineffective [Unknown]
